FAERS Safety Report 15136807 (Version 2)
Quarter: 2018Q3

REPORT INFORMATION
  Report Type: Report from Study
  Country: US (occurrence: US)
  Receive Date: 20180712
  Receipt Date: 20180814
  Transmission Date: 20181010
  Serious: Yes (Other)
  Sender: FDA-Public Use
  Company Number: US-ROCHE-2153589

PATIENT
  Age: 72 Year

DRUGS (6)
  1. HALOPERIDOL. [Concomitant]
     Active Substance: HALOPERIDOL
     Route: 065
  2. DIAZEPAM. [Suspect]
     Active Substance: DIAZEPAM
     Indication: INDUCTION OF ANAESTHESIA
     Dosage: 0.2 PER CENT SOLUTION IN 5 PER CENT DEXTROSE
     Route: 042
  3. METHOHEXITONE [Concomitant]
     Route: 065
  4. SCOPOLAMINE [Concomitant]
     Active Substance: SCOPOLAMINE
     Route: 065
  5. DEXTROSE. [Concomitant]
     Active Substance: DEXTROSE
     Route: 065
  6. DIAZEPAM. [Suspect]
     Active Substance: DIAZEPAM
     Dosage: 0.16?0.32 MG/KG IN PART 3
     Route: 042

REACTIONS (1)
  - Apnoea [Recovered/Resolved]
